FAERS Safety Report 9855944 (Version 1)
Quarter: 2013Q4

REPORT INFORMATION
  Report Type: Spontaneous
  Country: US (occurrence: None)
  Receive Date: 20131226
  Receipt Date: 20131226
  Transmission Date: 20140711
  Serious: No
  Sender: FDA-Public Use
  Company Number: PHHY2013US084643

PATIENT
  Age: 63 Year
  Sex: Female

DRUGS (12)
  1. GILENYA ( FINGOLIMOD) CAPSULE, 0.5 MG [Suspect]
     Indication: RELAPSING-REMITTING MULTIPLE SCLEROSIS
  2. NORVASC (AMLODIPINE BESILATE) [Concomitant]
  3. RESTASIS (CICLOSPORIN) EMULSION [Concomitant]
  4. ENABLEX (DARIFENACIN HYDROBROMIDE) [Concomitant]
  5. ARTHROTEC (DICLOFENAC SODIUM, MISOPROSTOL) [Concomitant]
  6. VIBRA-TABS (DOXYCYCLINE HYCLATE) [Concomitant]
  7. PREMARIN (ESTROGENS CONJUGATED) [Concomitant]
  8. ARTIFICIAL TEARS (HYPROMELLOSE) [Concomitant]
  9. CYANOCOBALAMIN (CYANOCOBALAMIN) (CYANOCOBALAMIN) [Concomitant]
  10. FERROUS SULPHATE (FERROUS SULFATE) [Concomitant]
  11. CALCIUM + VITAMIN D (CALCIUM CARBONATE, COLECALCIFEROL) [Concomitant]
  12. ZANAFLEX (TIZANIDINE HYDROCHLORIDE) [Concomitant]

REACTIONS (1)
  - Anosmia [None]
